FAERS Safety Report 7799720-0 (Version None)
Quarter: 2011Q4

REPORT INFORMATION
  Report Type: 
  Country: None (occurrence: None)
  Receive Date: 20111006
  Receipt Date: 20110930
  Transmission Date: 20120403
  Serious: Yes (Death, Hospitalization, Other)
  Sender: FDA-Public Use
  Company Number: PHEH2010US02625

PATIENT
  Sex: Male

DRUGS (26)
  1. FLOMAX [Concomitant]
  2. LIPITOR [Concomitant]
  3. CALCIUM CARBONATE [Concomitant]
  4. SENOKOT [Concomitant]
  5. UROXATRAL [Concomitant]
     Dosage: 2 MG, BID
  6. PULMICORT [Concomitant]
     Dosage: 0.25 MG, BID
  7. MULTIVITAMIN [Concomitant]
     Dosage: 2 DF, BID
     Route: 048
  8. WARFARIN SODIUM [Concomitant]
  9. ATACAND [Concomitant]
     Dosage: 16 MG, QD
     Route: 048
  10. ROXICET [Concomitant]
  11. INFLUENZA VACCINE [Concomitant]
     Dates: start: 20060901
  12. ALBUTEROL SULFATE [Concomitant]
  13. MUCINEX [Concomitant]
     Dosage: 600 MG, QHS
     Route: 048
  14. DIURETICS [Concomitant]
  15. ASPIRIN [Concomitant]
     Dosage: 81 MG, QD
     Route: 048
  16. ADVAIR DISKUS 100/50 [Suspect]
  17. MEGESTROL ACETATE [Concomitant]
  18. NAPROXEN (ALEVE) [Concomitant]
     Dosage: 220 MG, PRN
     Route: 048
  19. ZOMETA [Suspect]
     Dosage: 4 MG, QMO
     Route: 042
     Dates: start: 20010101, end: 20070401
  20. SPIRIVA [Suspect]
  21. CARDIZEM [Concomitant]
  22. FOSAMAX [Concomitant]
     Dosage: UNK UKN, WEEKLY
  23. MULTI-VITAMINS [Concomitant]
  24. METFORMIN HCL [Concomitant]
     Dosage: 500 MG, TID
     Route: 048
  25. BETA BLOCKING AGENTS [Concomitant]
  26. METAMUCIL-2 [Concomitant]
     Dosage: 2 DF, QD

REACTIONS (54)
  - DEAFNESS NEUROSENSORY [None]
  - LYMPHADENOPATHY [None]
  - ANXIETY [None]
  - BREAST CANCER RECURRENT [None]
  - CHRONIC OBSTRUCTIVE PULMONARY DISEASE [None]
  - EMPHYSEMA [None]
  - TYPE 2 DIABETES MELLITUS [None]
  - HAEMATURIA [None]
  - HAEMOGLOBIN DECREASED [None]
  - TOOTH INFECTION [None]
  - PHLEBITIS [None]
  - URINARY TRACT INFECTION [None]
  - INJURY [None]
  - PAIN IN JAW [None]
  - METASTASES TO BONE [None]
  - METASTASES TO SPLEEN [None]
  - ADRENAL MASS [None]
  - BACK PAIN [None]
  - FATIGUE [None]
  - ERYTHEMA [None]
  - PROSTATE CANCER METASTATIC [None]
  - DYSPNOEA [None]
  - CARPAL TUNNEL SYNDROME [None]
  - RHEUMATOID ARTHRITIS [None]
  - SQUAMOUS CELL CARCINOMA [None]
  - BRONCHITIS [None]
  - DEATH [None]
  - METASTASES TO LIVER [None]
  - VISION BLURRED [None]
  - HOT FLUSH [None]
  - HYPERLIPIDAEMIA [None]
  - MALAISE [None]
  - HAEMATOMA [None]
  - PAIN [None]
  - BREAST MASS [None]
  - PLEURAL EFFUSION [None]
  - CAROTID ARTERY DISEASE [None]
  - HYPERTENSION [None]
  - GOUT [None]
  - NOCTURIA [None]
  - DYSURIA [None]
  - HERPES VIRUS INFECTION [None]
  - HYPOTENSION [None]
  - ANHEDONIA [None]
  - MACULAR DEGENERATION [None]
  - RED BLOOD CELL COUNT DECREASED [None]
  - OSTEONECROSIS OF JAW [None]
  - TOOTHACHE [None]
  - METASTASES TO SPINE [None]
  - HEPATIC STEATOSIS [None]
  - DEEP VEIN THROMBOSIS [None]
  - OEDEMA PERIPHERAL [None]
  - NECK PAIN [None]
  - NEOPLASM MALIGNANT [None]
